FAERS Safety Report 9063117 (Version 2)
Quarter: 2013Q2

REPORT INFORMATION
  Report Type: Report from Study
  Country: CA (occurrence: CA)
  Receive Date: 20130213
  Receipt Date: 20130411
  Transmission Date: 20140414
  Serious: Yes (Other)
  Sender: FDA-Public Use
  Company Number: CA-JNJFOC-20130200337

PATIENT
  Age: 16 Year
  Sex: Female
  Weight: 65 kg

DRUGS (4)
  1. REMICADE [Suspect]
     Indication: CROHN^S DISEASE
     Route: 042
  2. REMICADE [Suspect]
     Indication: CROHN^S DISEASE
     Route: 042
  3. REMICADE [Suspect]
     Indication: CROHN^S DISEASE
     Route: 042
     Dates: start: 20121229
  4. SOLUCORTEF [Concomitant]
     Indication: PREMEDICATION
     Route: 065

REACTIONS (3)
  - Therapeutic response decreased [Unknown]
  - Ovarian cyst [Unknown]
  - Abdominal pain [Unknown]
